FAERS Safety Report 9241774 (Version 2)
Quarter: 2013Q2

REPORT INFORMATION
  Report Type: Report from Study
  Country: US (occurrence: US)
  Receive Date: 20130419
  Receipt Date: 20130606
  Transmission Date: 20140414
  Serious: Yes (Hospitalization)
  Sender: FDA-Public Use
  Company Number: US-JNJFOC-20130406315

PATIENT
  Age: 31 Year
  Sex: Male
  Weight: 82.1 kg

DRUGS (8)
  1. REMICADE [Suspect]
     Indication: CROHN^S DISEASE
     Route: 042
     Dates: start: 20121012, end: 20130301
  2. AZATHIOPRINE [Suspect]
     Indication: CROHN^S DISEASE
     Route: 048
     Dates: start: 20121003, end: 201301
  3. PREDNISONE [Concomitant]
     Indication: CROHN^S DISEASE
     Route: 048
  4. PREDNISONE [Concomitant]
     Indication: CROHN^S DISEASE
     Route: 048
     Dates: start: 20121003, end: 201301
  5. NOVOLOG [Concomitant]
     Indication: DIABETES MELLITUS
     Route: 058
  6. LANTUS [Concomitant]
     Indication: DIABETES MELLITUS
     Route: 058
  7. IRON [Concomitant]
     Indication: IRON DEFICIENCY ANAEMIA
     Route: 065
  8. OMEPRAZOLE [Concomitant]
     Route: 048

REACTIONS (4)
  - Interstitial lung disease [Unknown]
  - Hepatic enzyme increased [Recovered/Resolved]
  - Pneumonia [Not Recovered/Not Resolved]
  - Pneumothorax [Recovering/Resolving]
